FAERS Safety Report 8677827 (Version 3)
Quarter: 2012Q4

REPORT INFORMATION
  Report Type: Report from Study
  Country: CA (occurrence: CA)
  Receive Date: 20120723
  Receipt Date: 20121026
  Transmission Date: 20130627
  Serious: Yes (Hospitalization, Other)
  Sender: FDA-Public Use
  Company Number: CA-ROCHE-1081086

PATIENT
  Age: 63 Year
  Sex: Female

DRUGS (17)
  1. VEMURAFENIB [Suspect]
     Indication: METASTATIC MALIGNANT MELANOMA
     Route: 048
     Dates: start: 20120504, end: 20120714
  2. VEMURAFENIB [Suspect]
     Route: 048
     Dates: start: 201207
  3. VEMURAFENIB [Suspect]
     Route: 048
     Dates: start: 20120730
  4. VEMURAFENIB [Suspect]
     Route: 048
     Dates: start: 20120924, end: 201210
  5. ATENOLOL [Concomitant]
  6. NORVASC [Concomitant]
  7. HYDROCHLOROTHIAZIDE [Concomitant]
  8. SYNTHROID [Concomitant]
  9. CRESTOR [Concomitant]
  10. ASPIRIN [Concomitant]
  11. VITAMIN E [Concomitant]
  12. ZOFRAN [Concomitant]
  13. DILAUDID [Concomitant]
  14. CLONAZEPAM [Concomitant]
  15. PREMARIN [Concomitant]
  16. SENOKOT [Concomitant]
     Route: 065
  17. TYLENOL [Concomitant]
     Route: 065

REACTIONS (17)
  - Hypoaesthesia [Recovered/Resolved]
  - Eosinophil count increased [Unknown]
  - Oedema [Not Recovered/Not Resolved]
  - Decreased appetite [Not Recovered/Not Resolved]
  - Hypotension [Recovering/Resolving]
  - Fatigue [Not Recovered/Not Resolved]
  - Rash [Not Recovered/Not Resolved]
  - Rash [Unknown]
  - Arthralgia [Not Recovered/Not Resolved]
  - Myalgia [Not Recovered/Not Resolved]
  - Skin papilloma [Not Recovered/Not Resolved]
  - Joint stiffness [Not Recovered/Not Resolved]
  - Alopecia [Not Recovered/Not Resolved]
  - Skin exfoliation [Not Recovered/Not Resolved]
  - Pain [Not Recovered/Not Resolved]
  - Disease progression [Not Recovered/Not Resolved]
  - Drug ineffective [Unknown]
